FAERS Safety Report 8405850-2 (Version None)
Quarter: 2012Q2

REPORT INFORMATION
  Report Type: 
  Country: None (occurrence: None)
  Receive Date: 20120604
  Receipt Date: 20120529
  Transmission Date: 20120825
  Serious: No
  Sender: FDA-Public Use
  Company Number: US-PFIZER INC-2012130002

PATIENT
  Sex: Female
  Weight: 62 kg

DRUGS (1)
  1. DIFLUCAN [Suspect]
     Indication: FUNGAL INFECTION
     Dosage: 150 MG, DAILY
     Dates: start: 20120322, end: 20120323

REACTIONS (2)
  - NAUSEA [None]
  - HYPERSENSITIVITY [None]
